FAERS Safety Report 9507090 (Version 1)
Quarter: 2013Q1

REPORT INFORMATION
  Report Type: Spontaneous
  Country: US (occurrence: None)
  Receive Date: 20130305
  Receipt Date: 20130305
  Transmission Date: 20140127
  Serious: Yes (Hospitalization)
  Sender: FDA-Public Use
  Company Number: 163-21880-12030277

PATIENT
  Age: 65 Year
  Sex: Female

DRUGS (10)
  1. REVLIMID (LENALIDOMIDE) (15 MILLIGRAM, CAPSULES) [Suspect]
     Indication: PLASMA CELL MYELOMA
     Dosage: 15 MG, DAILY X 14 DAYS, PO
     Route: 048
     Dates: start: 20110316
  2. CYCLOPHOSPHAMIDE (CYCLPHOSPHAMIDE) [Concomitant]
  3. DEXAMETHASONE (DEXAMETHASONE) [Concomitant]
  4. GABAPENTIN (GABAPENTIN) [Concomitant]
  5. HYDROCCHLOROTHIAZIDE (HYDROCHLOROTHIAZIDE) [Concomitant]
  6. MULTIVITAMINS - MINERALS (MULTIVITAMINS WITH MINERALS) [Concomitant]
  7. POTASSIUM CHLORIDE CR (POTASSIUM CHLORIDE) [Concomitant]
  8. PROCHLORPERAZINE MALEATE (PROCHLORPERAZINE MALEATE) [Concomitant]
  9. VELCADE (BORTEZOMIB) [Concomitant]
  10. FLONASE (FLUTICASONE PROPIONATE) [Concomitant]

REACTIONS (1)
  - Pneumonia [None]
